FAERS Safety Report 9729453 (Version 1)
Quarter: 2013Q4

REPORT INFORMATION
  Report Type: Spontaneous
  Country: US (occurrence: US)
  Receive Date: 20131204
  Receipt Date: 20131204
  Transmission Date: 20140711
  Serious: No
  Sender: FDA-Public Use
  Company Number: US-GILEAD-2009-0021478

PATIENT
  Age: 61 Year
  Sex: Female
  Weight: 79.38 kg

DRUGS (11)
  1. LETAIRIS [Suspect]
     Indication: PULMONARY ARTERIAL HYPERTENSION
     Route: 048
     Dates: start: 20090327
  2. AMLODIPINE [Concomitant]
  3. ADVAIR [Concomitant]
  4. FLUOCIN ACET [Concomitant]
  5. MORPHINE SULFATE [Concomitant]
  6. VALIUM [Concomitant]
  7. DULCOLAX [Concomitant]
  8. DERMA-SMOOTHE [Concomitant]
  9. MIRALAX POW [Concomitant]
  10. MUCINEX [Concomitant]
  11. T/GEL [Concomitant]

REACTIONS (3)
  - Back pain [Unknown]
  - Constipation [Not Recovered/Not Resolved]
  - Nasal congestion [Not Recovered/Not Resolved]
